FAERS Safety Report 11130050 (Version 1)
Quarter: 2015Q2

REPORT INFORMATION
  Report Type: Spontaneous
  Country: HK (occurrence: HK)
  Receive Date: 20150521
  Receipt Date: 20150521
  Transmission Date: 20150821
  Serious: Yes (Other)
  Sender: FDA-Public Use
  Company Number: HK-MYLANLABS-2015M1016756

PATIENT

DRUGS (1)
  1. KETAMINE [Suspect]
     Active Substance: KETAMINE
     Route: 065

REACTIONS (4)
  - Drug abuse [Unknown]
  - Bile duct obstruction [Recovered/Resolved]
  - Biliary tract infection [Recovered/Resolved]
  - Sphincter of Oddi dysfunction [Recovered/Resolved]
